FAERS Safety Report 21914831 (Version 1)
Quarter: 2023Q1

REPORT INFORMATION
  Report Type: Other
  Country: CA (occurrence: CA)
  Receive Date: 20230126
  Receipt Date: 20230126
  Transmission Date: 20230417
  Serious: Yes (Other)
  Sender: FDA-Public Use
  Company Number: CA-CELLTRION INC.-2023CA001143

PATIENT

DRUGS (4)
  1. RITUXIMAB [Suspect]
     Active Substance: RITUXIMAB
     Indication: Multiple sclerosis relapse
     Dosage: 1000 MG
     Route: 042
  2. ACETAMINOPHEN [Concomitant]
     Active Substance: ACETAMINOPHEN
     Route: 048
  3. DIPHENHYDRAMINE HYDROCHLORIDE [Concomitant]
     Active Substance: DIPHENHYDRAMINE HYDROCHLORIDE
     Route: 065
  4. METHYLPREDNISOLONE [Concomitant]
     Active Substance: METHYLPREDNISOLONE
     Route: 042

REACTIONS (11)
  - Clumsiness [Unknown]
  - Diplopia [Unknown]
  - Vision blurred [Unknown]
  - Asthenia [Unknown]
  - Balance disorder [Unknown]
  - Blindness [Unknown]
  - Hypoaesthesia [Unknown]
  - Muscular weakness [Unknown]
  - Sensory loss [Unknown]
  - Off label use [Unknown]
  - Off label use [Unknown]
